FAERS Safety Report 5981931-8 (Version None)
Quarter: 2008Q4

REPORT INFORMATION
  Report Type: 
  Country: None (occurrence: None)
  Receive Date: 20081202
  Receipt Date: 20081117
  Transmission Date: 20090506
  Serious: Yes (Death)
  Sender: FDA-Public Use
  Company Number: KV200800513

PATIENT
  Age: 55 Year
  Sex: Female
  Weight: 79 kg

DRUGS (3)
  1. MORPHINE SULFATE(MORPHINE SULFATE) SLOW RELEASE TABLET, 30MG [Suspect]
     Indication: PAIN
     Dosage: 30 MG, BID, ORAL
     Route: 048
     Dates: start: 20060101, end: 20070101
  2. MORPHINE SULFATE(MORPHINE SULFATE) SLOW RELEASE TABLET, 60MG [Suspect]
     Indication: PAIN
     Dosage: 60 MG, BID, ORAL
     Route: 048
     Dates: start: 20060101, end: 20070101
  3. CYCLOBENZAPRINE [Concomitant]

REACTIONS (2)
  - DRUG TOXICITY [None]
  - PRODUCT QUALITY ISSUE [None]
